FAERS Safety Report 8376647-7 (Version None)
Quarter: 2012Q2

REPORT INFORMATION
  Report Type: 
  Country: None (occurrence: None)
  Receive Date: 20120522
  Receipt Date: 20120508
  Transmission Date: 20120825
  Serious: Yes (Hospitalization)
  Sender: FDA-Public Use
  Company Number: US-NOVEN-12US004623

PATIENT
  Sex: Female

DRUGS (4)
  1. FENTANYL-100 [Suspect]
     Dosage: 100 UG/HR, UNK
     Dates: start: 20110101
  2. HYDROCODONE [Concomitant]
     Indication: BREAKTHROUGH PAIN
     Route: 048
  3. FENTANYL-100 [Suspect]
     Dosage: 100 UG, UNK
     Dates: start: 20110101
  4. FENTANYL-100 [Suspect]
     Indication: PAIN
     Dosage: 100 UG/HR, UNK
     Route: 062
     Dates: start: 20110101

REACTIONS (5)
  - INADEQUATE ANALGESIA [None]
  - PRODUCT QUALITY ISSUE [None]
  - APPLICATION SITE RASH [None]
  - DEFICIENCY ANAEMIA [None]
  - DRUG ADMINISTRATION ERROR [None]
